APPROVED DRUG PRODUCT: MAFENIDE ACETATE
Active Ingredient: MAFENIDE ACETATE
Strength: 5%
Dosage Form/Route: FOR SOLUTION;TOPICAL
Application: A201511 | Product #001
Applicant: PH HEALTH LTD
Approved: Feb 12, 2013 | RLD: No | RS: No | Type: DISCN